FAERS Safety Report 19584839 (Version 2)
Quarter: 2022Q2

REPORT INFORMATION
  Report Type: Spontaneous
  Country: US (occurrence: US)
  Receive Date: 20210720
  Receipt Date: 20220524
  Transmission Date: 20220721
  Serious: Yes (Other)
  Sender: FDA-Public Use
  Company Number: US-MYLANLABS-2021M1043021

PATIENT
  Age: 58 Year
  Sex: Male
  Weight: 121 kg

DRUGS (15)
  1. HYDROCHLOROTHIAZIDE\VALSARTAN [Suspect]
     Active Substance: HYDROCHLOROTHIAZIDE\VALSARTAN
     Indication: Hypertension
     Dosage: UNK
     Dates: start: 20120926, end: 20130404
  2. VALSARTAN [Suspect]
     Active Substance: VALSARTAN
     Indication: Hypertension
     Dosage: UNK
     Dates: start: 20160602, end: 20180325
  3. VALSARTAN [Suspect]
     Active Substance: VALSARTAN
     Indication: Hypertension
     Dosage: UNK
     Dates: start: 20180327, end: 20180926
  4. VALSARTAN [Suspect]
     Active Substance: VALSARTAN
     Indication: Hypertension
     Dosage: UNK
     Dates: start: 20140815, end: 20150213
  5. VALSARTAN [Suspect]
     Active Substance: VALSARTAN
     Dosage: UNK
     Dates: start: 20150224, end: 20160530
  6. ECOTRIN [Concomitant]
     Active Substance: ASPIRIN
     Indication: Cardiovascular event prophylaxis
     Dosage: 81 MILLIGRAM, QD
     Dates: end: 20160315
  7. LIPITOR [Concomitant]
     Active Substance: ATORVASTATIN CALCIUM
     Dosage: 40 MILLIGRAM, TOTAL, BY MOUTH NIGHTLY
     Route: 048
     Dates: end: 20160314
  8. ULORIC [Concomitant]
     Active Substance: FEBUXOSTAT
     Dosage: 40 MILLIGRAM, AM, BY MOUTH EVERY MORNING
     Route: 048
  9. LASIX [Concomitant]
     Active Substance: FUROSEMIDE
     Dosage: 80 MILLIGRAM, QD, BY MOUTH DAILY
     Route: 048
     Dates: start: 20160315, end: 20160315
  10. LEVEMIR [Concomitant]
     Active Substance: INSULIN DETEMIR
     Dosage: 50 INTERNATIONAL UNIT, QD
     Dates: end: 20160315
  11. MAGNESIUM OXIDE [Concomitant]
     Active Substance: MAGNESIUM OXIDE
     Dosage: 400 MILLIGRAM, QD, TAKE 1 TABLET (400 MG TOTAL) BY MOUTH DAILY.
     Route: 048
     Dates: end: 20160315
  12. TOPROL XL [Concomitant]
     Active Substance: METOPROLOL SUCCINATE
     Dosage: 50 MILLIGRAM, QD, TAKE 50 MG BY MOUTH DAILY
     Route: 048
     Dates: end: 20160315
  13. ALDACTONE [Concomitant]
     Active Substance: SPIRONOLACTONE
     Dosage: 50 MILLIGRAM, QD, TAKE 50 MG BY MOUTH DAILY
     Route: 048
     Dates: end: 20160315
  14. DIOVAN [Concomitant]
     Active Substance: VALSARTAN
     Dosage: 320 MILLIGRAM, QD, TAKE 320 MG BY MOUTH DAILY
     Route: 048
     Dates: end: 20160315
  15. NORVASC [Concomitant]
     Active Substance: AMLODIPINE BESYLATE
     Dosage: UNK

REACTIONS (3)
  - Non-Hodgkin^s lymphoma [Unknown]
  - Renal failure [Unknown]
  - Depression [Unknown]

NARRATIVE: CASE EVENT DATE: 20160330
